FAERS Safety Report 8835082 (Version 1)
Quarter: 2012Q4

REPORT INFORMATION
  Report Type: 
  Country: FI (occurrence: FI)
  Receive Date: 20121010
  Receipt Date: 20121010
  Transmission Date: 20130627
  Serious: Yes (Hospitalization)
  Sender: FDA-Public Use
  Company Number: FI-BAYER-2012-102470

PATIENT
  Age: 55 Year
  Sex: Female

DRUGS (4)
  1. AVELOX [Suspect]
     Indication: PNEUMONIA
     Dosage: 400 mg, UNK
     Route: 048
     Dates: start: 20120917, end: 20120921
  2. TRILEPTAL [Concomitant]
     Indication: EPILEPSY
     Dosage: 1200 mg, UNK
     Route: 048
     Dates: start: 20020101
  3. THYROXIN [Concomitant]
     Indication: HYPOTHYROIDISM
     Dosage: 0.1 mg, UNK
     Route: 048
     Dates: start: 2008
  4. EFEXOR [Concomitant]
     Indication: DEPRESSION
     Dosage: 150 mg, UNK
     Route: 048
     Dates: start: 2008

REACTIONS (1)
  - Eclampsia [Recovered/Resolved]
